FAERS Safety Report 20506636 (Version 1)
Quarter: 2022Q1

REPORT INFORMATION
  Report Type: Spontaneous
  Country: US (occurrence: US)
  Receive Date: 20220223
  Receipt Date: 20220223
  Transmission Date: 20220423
  Serious: Yes (Death, Other)
  Sender: FDA-Public Use
  Company Number: US-PFIZER INC-202200256081

PATIENT
  Age: 70 Year
  Sex: Male

DRUGS (8)
  1. METOPROLOL TARTRATE [Suspect]
     Active Substance: METOPROLOL TARTRATE
     Dosage: UNK (INGESTION)
     Route: 048
  2. METOPROLOL TARTRATE [Suspect]
     Active Substance: METOPROLOL TARTRATE
     Dosage: UNK (PARENTERAL)
     Route: 051
  3. QUETIAPINE [Suspect]
     Active Substance: QUETIAPINE
     Dosage: UNK (INGESTION)
     Route: 048
  4. QUETIAPINE [Suspect]
     Active Substance: QUETIAPINE
     Dosage: UNK (PARENTERAL)
     Route: 051
  5. INSULIN NOS [Suspect]
     Active Substance: INSULIN NOS
     Dosage: UNK (INGESTION)
     Route: 048
  6. INSULIN NOS [Suspect]
     Active Substance: INSULIN NOS
     Dosage: UNK (PARENTERAL)
     Route: 051
  7. LISINOPRIL [Suspect]
     Active Substance: LISINOPRIL
     Dosage: UNK (INGESTION)
     Route: 048
  8. LISINOPRIL [Suspect]
     Active Substance: LISINOPRIL
     Dosage: UNK (PARENTERAL)
     Route: 051

REACTIONS (1)
  - Completed suicide [Fatal]

NARRATIVE: CASE EVENT DATE: 20200101
